FAERS Safety Report 9717766 (Version 1)
Quarter: 2013Q4

REPORT INFORMATION
  Report Type: Spontaneous
  Country: US (occurrence: None)
  Receive Date: 20131125
  Receipt Date: 20131125
  Transmission Date: 20140711
  Serious: Yes (Death)
  Sender: FDA-Public Use
  Company Number: 2013STPI000461

PATIENT
  Age: 87 Year
  Sex: Male
  Weight: 74 kg

DRUGS (1)
  1. MATULANE [Suspect]
     Indication: HODGKIN^S DISEASE
     Route: 048
     Dates: end: 201310

REACTIONS (1)
  - Death [None]
